FAERS Safety Report 12635674 (Version 1)
Quarter: 2016Q3

REPORT INFORMATION
  Report Type: Spontaneous
  Country: US (occurrence: US)
  Receive Date: 20160809
  Receipt Date: 20160809
  Transmission Date: 20161109
  Serious: Yes (Other)
  Sender: FDA-Public Use
  Company Number: US-GLENMARK PHARMACEUTICALS INC, USA.-2016GMK023620

PATIENT

DRUGS (1)
  1. ACAMPROSATE CALCIUM. [Suspect]
     Active Substance: ACAMPROSATE CALCIUM
     Indication: DRUG DEPENDENCE
     Dosage: 3 DF, BID
     Route: 048

REACTIONS (4)
  - Nephrolithiasis [Unknown]
  - Anxiety [Unknown]
  - Pain [Unknown]
  - Off label use [Unknown]
